FAERS Safety Report 6856003-0 (Version None)
Quarter: 2010Q2

REPORT INFORMATION
  Report Type: 
  Country: None (occurrence: None)
  Receive Date: 20100629
  Receipt Date: 20100518
  Transmission Date: 20101027
  Serious: No
  Sender: FDA-Public Use
  Company Number: US-WYE-H15234510

PATIENT
  Age: 56 Year
  Sex: Female
  Weight: 63.56 kg

DRUGS (3)
  1. PRISTIQ [Suspect]
     Indication: ANXIETY
     Dosage: DAILY DOSE
     Dates: start: 20090901
  2. PRISTIQ [Suspect]
     Indication: DEPRESSION
     Dosage: DAILY DOSE
     Dates: start: 20090901
  3. WELLBUTRIN [Concomitant]

REACTIONS (6)
  - ANXIETY [None]
  - CHEST DISCOMFORT [None]
  - DRUG WITHDRAWAL SYNDROME [None]
  - PANIC REACTION [None]
  - STRESS [None]
  - TEARFULNESS [None]
